FAERS Safety Report 15132907 (Version 1)
Quarter: 2018Q3

REPORT INFORMATION
  Report Type: Spontaneous
  Country: MT (occurrence: MT)
  Receive Date: 20180712
  Receipt Date: 20180712
  Transmission Date: 20181010
  Serious: Yes (Disabling)
  Sender: FDA-Public Use
  Company Number: MT-TEVA-2018-MT-923620

PATIENT
  Age: 35 Year
  Sex: Female

DRUGS (2)
  1. FLILAIR (FLUTICASONE) [Suspect]
     Active Substance: FLUTICASONE
     Indication: ASTHMA
     Route: 065
     Dates: start: 20170901, end: 20171111
  2. SALBUTAMOL [Suspect]
     Active Substance: ALBUTEROL
     Indication: ASTHMA
     Route: 065

REACTIONS (1)
  - Asthma [Recovering/Resolving]
